FAERS Safety Report 24653261 (Version 2)
Quarter: 2025Q1

REPORT INFORMATION
  Report Type: Spontaneous
  Country: US (occurrence: US)
  Receive Date: 20241122
  Receipt Date: 20250108
  Transmission Date: 20250409
  Serious: Yes (Death, Hospitalization)
  Sender: PFIZER
  Company Number: US-PFIZER INC-202400305888

PATIENT
  Age: 81 Year
  Sex: Female

DRUGS (1)
  1. VYNDAMAX [Suspect]
     Active Substance: TAFAMIDIS
     Indication: Cardiac amyloidosis
     Dosage: 61 MILLIGRAMS, ONCE A DAY

REACTIONS (3)
  - Death [Fatal]
  - Aortic valve replacement [Unknown]
  - Dialysis [Unknown]

NARRATIVE: CASE EVENT DATE: 20241109
